FAERS Safety Report 6992186-X (Version None)
Quarter: 2010Q3

REPORT INFORMATION
  Report Type: 
  Country: None (occurrence: None)
  Receive Date: 20100917
  Receipt Date: 20100831
  Transmission Date: 20110219
  Serious: No
  Sender: FDA-Public Use
  Company Number: A0876125A

PATIENT
  Age: 58 Year
  Sex: Male
  Weight: 104.1 kg

DRUGS (14)
  1. PROMACTA [Suspect]
     Indication: IDIOPATHIC THROMBOCYTOPENIC PURPURA
     Route: 048
     Dates: start: 20100701
  2. ACETAMINOPHEN [Concomitant]
     Route: 048
  3. HYDRALAZINE HYDROCHLORIDE [Concomitant]
     Dosage: 25MG TWICE PER DAY
     Route: 048
  4. KEPPRA [Concomitant]
     Route: 048
  5. KLOR-CON [Concomitant]
     Dosage: 10MG TWICE PER DAY
  6. LANTUS [Concomitant]
  7. LOPRESSOR [Concomitant]
     Dosage: 25MG TWICE PER DAY
  8. NIACIN [Concomitant]
     Dosage: 500MG AT NIGHT
  9. NOVOLOG [Concomitant]
  10. PRILOSEC [Concomitant]
     Dosage: 40MG PER DAY
  11. LISINOPRIL [Concomitant]
     Dosage: 10MG PER DAY
  12. SEVELAMER [Concomitant]
     Route: 048
  13. WELLBUTRIN [Concomitant]
     Dosage: 100MG PER DAY
  14. ZOCOR [Concomitant]
     Dosage: 10MG AT NIGHT

REACTIONS (1)
  - STOMATITIS [None]
